FAERS Safety Report 9106154 (Version 1)
Quarter: 2013Q1

REPORT INFORMATION
  Report Type: Spontaneous
  Country: US (occurrence: US)
  Receive Date: 20130221
  Receipt Date: 20130221
  Transmission Date: 20140127
  Serious: No
  Sender: FDA-Public Use
  Company Number: US-ASTRAZENECA-2013SE11392

PATIENT
  Age: 39 Year
  Sex: Female
  Weight: 59 kg

DRUGS (1)
  1. ZOMIG ZMT [Suspect]
     Indication: MIGRAINE
     Route: 048

REACTIONS (7)
  - Tremor [Unknown]
  - Metal poisoning [Unknown]
  - Immune system disorder [Unknown]
  - Influenza [Unknown]
  - Gastroenteritis norovirus [Unknown]
  - Paraesthesia [Unknown]
  - Dysgeusia [Unknown]
